FAERS Safety Report 7604404-5 (Version None)
Quarter: 2011Q3

REPORT INFORMATION
  Report Type: 
  Country: None (occurrence: None)
  Receive Date: 20110712
  Receipt Date: 20110630
  Transmission Date: 20111222
  Serious: Yes (Other)
  Sender: FDA-Public Use
  Company Number: JP-AMGEN-JPNSP2011033596

PATIENT
  Age: 80 Year
  Sex: Male

DRUGS (7)
  1. CINACALCET HYDROCHLORIDE [Suspect]
     Route: 048
     Dates: start: 20101227, end: 20110127
  2. ASPIRIN [Concomitant]
     Route: 048
  3. BROTIZOLAN [Concomitant]
     Route: 048
  4. CALTAN OD [Concomitant]
     Route: 048
  5. CINACALCET HYDROCHLORIDE [Suspect]
     Route: 048
     Dates: start: 20110525, end: 20110608
  6. LANSOPRAZOLE [Concomitant]
     Route: 048
  7. CINACALCET HYDROCHLORIDE [Suspect]
     Indication: PRODUCT USED FOR UNKNOWN INDICATION
     Dosage: 25 MG, UNK
     Route: 048

REACTIONS (1)
  - LIVER DISORDER [None]
